FAERS Safety Report 16635974 (Version 1)
Quarter: 2019Q3

REPORT INFORMATION
  Report Type: Spontaneous
  Country: US (occurrence: US)
  Receive Date: 20190726
  Receipt Date: 20190726
  Transmission Date: 20191004
  Serious: No
  Sender: FDA-Public Use
  Company Number: US-JNJFOC-20190722676

PATIENT
  Age: 49 Year
  Sex: Male
  Weight: 86.26 kg

DRUGS (2)
  1. STELARA [Suspect]
     Active Substance: USTEKINUMAB
     Indication: CROHN^S DISEASE
     Route: 042
     Dates: start: 2019
  2. STELARA [Suspect]
     Active Substance: USTEKINUMAB
     Route: 058
     Dates: start: 20190628

REACTIONS (2)
  - Pruritus [Unknown]
  - Joint swelling [Unknown]

NARRATIVE: CASE EVENT DATE: 201907
